FAERS Safety Report 14703789 (Version 1)
Quarter: 2018Q2

REPORT INFORMATION
  Report Type: Report from Study
  Country: FR (occurrence: FR)
  Receive Date: 20180402
  Receipt Date: 20180402
  Transmission Date: 20180711
  Serious: Yes (Hospitalization)
  Sender: FDA-Public Use
  Company Number: PHHO2014FR021256

PATIENT
  Age: 61 Year
  Sex: Male
  Weight: 60 kg

DRUGS (1)
  1. PAZOPANIB [Suspect]
     Active Substance: PAZOPANIB
     Indication: THYROID CANCER
     Dosage: 600 MG, QD
     Route: 065
     Dates: start: 20140408

REACTIONS (1)
  - Cementoplasty [Recovered/Resolved with Sequelae]

NARRATIVE: CASE EVENT DATE: 20141205
